FAERS Safety Report 5924815-3 (Version None)
Quarter: 2008Q4

REPORT INFORMATION
  Report Type: 
  Country: None (occurrence: None)
  Receive Date: 20081020
  Receipt Date: 20081020
  Transmission Date: 20090506
  Serious: Yes (Other)
  Sender: FDA-Public Use
  Company Number: None

PATIENT
  Age: 47 Year
  Sex: Female

DRUGS (1)
  1. GADOBENATE DIMEGLUMINE-MULTIH [Suspect]
     Indication: NUCLEAR MAGNETIC RESONANCE IMAGING
     Dosage: 7 ML ONCE IV
     Route: 042
     Dates: start: 20081016, end: 20081016

REACTIONS (2)
  - PHARYNGEAL DISORDER [None]
  - RETCHING [None]
